FAERS Safety Report 5301774-8 (Version None)
Quarter: 2007Q2

REPORT INFORMATION
  Report Type: 
  Country: None (occurrence: None)
  Receive Date: 20070419
  Receipt Date: 20070410
  Transmission Date: 20071010
  Serious: Yes (Other)
  Sender: FDA-Public Use
  Company Number: PHNU2007DE01028

PATIENT
  Age: 80 Year
  Sex: Female
  Weight: 36 kg

DRUGS (3)
  1. ZOMETA [Suspect]
     Indication: PLASMACYTOMA
     Dosage: 4 MG/DAY
     Dates: start: 20050321, end: 20060803
  2. MELPHALAN [Concomitant]
     Dosage: 15 MG/DAY
     Route: 042
     Dates: start: 20050301, end: 20050501
  3. VELCADE [Concomitant]
     Dates: start: 20050811, end: 20061012

REACTIONS (1)
  - OSTEONECROSIS [None]
